FAERS Safety Report 23695887 (Version 2)
Quarter: 2025Q1

REPORT INFORMATION
  Report Type: Report from Study
  Country: US (occurrence: US)
  Receive Date: 20240402
  Receipt Date: 20250221
  Transmission Date: 20250408
  Serious: Yes (Other)
  Sender: BEIGENE
  Company Number: US-BEIGENE-BGN-2024-004721

PATIENT
  Age: 88 Year
  Weight: 65.306 kg

DRUGS (1)
  1. BRUKINSA [Suspect]
     Active Substance: ZANUBRUTINIB
     Indication: Chronic lymphocytic leukaemia
     Dosage: 80 MILLIGRAM, BID

REACTIONS (5)
  - Dementia [Not Recovered/Not Resolved]
  - Anxiety [Recovering/Resolving]
  - Urinary tract infection [Recovering/Resolving]
  - Influenza [Recovered/Resolved]
  - Product dose omission issue [Unknown]
